FAERS Safety Report 11666319 (Version 2)
Quarter: 2015Q4

REPORT INFORMATION
  Report Type: Spontaneous
  Country: JP (occurrence: JP)
  Receive Date: 20151027
  Receipt Date: 20151029
  Transmission Date: 20160304
  Serious: Yes (Death, Hospitalization)
  Sender: FDA-Public Use
  Company Number: PHJP1999JP012272

PATIENT
  Age: 33 Year
  Sex: Male

DRUGS (1)
  1. VOLTAREN [Suspect]
     Active Substance: DICLOFENAC SODIUM
     Indication: PRODUCT USED FOR UNKNOWN INDICATION
     Dosage: UNK UKN, UNK

REACTIONS (6)
  - Osteonecrosis [Unknown]
  - Muscle spasms [Recovered/Resolved]
  - Death [Fatal]
  - Altered state of consciousness [Recovered/Resolved]
  - Seizure [Unknown]
  - Osteoarthritis [Unknown]
